FAERS Safety Report 5672462-3 (Version None)
Quarter: 2008Q1

REPORT INFORMATION
  Report Type: 
  Country: None (occurrence: None)
  Receive Date: 20080319
  Receipt Date: 20080311
  Transmission Date: 20080703
  Serious: Yes (Life-Threatening, Hospitalization)
  Sender: FDA-Public Use
  Company Number: FR-JNJFOC-20080302410

PATIENT
  Sex: Male

DRUGS (2)
  1. DURAGESIC-100 [Suspect]
     Indication: PAIN
     Route: 062
  2. VASOCONSTRICTOR [Suspect]
     Indication: DRUG USE FOR UNKNOWN INDICATION
     Route: 065

REACTIONS (6)
  - ACCIDENTAL OVERDOSE [None]
  - AMPUTATION [None]
  - ARTERITIS [None]
  - DRUG DISPENSING ERROR [None]
  - EXTREMITY NECROSIS [None]
  - VASOPLEGIA SYNDROME [None]
